FAERS Safety Report 6754072-X (Version None)
Quarter: 2010Q2

REPORT INFORMATION
  Report Type: 
  Country: None (occurrence: None)
  Receive Date: 20100520
  Receipt Date: 20090505
  Transmission Date: 20101027
  Serious: Yes (Other)
  Sender: FDA-Public Use
  Company Number: 2009208007

PATIENT
  Age: 60 Year
  Sex: Female

DRUGS (9)
  1. PROVERA [Suspect]
     Indication: HORMONE REPLACEMENT THERAPY
     Dosage: 2.5 MG, ORAL
     Route: 048
     Dates: start: 19880101
  2. PREMARIN [Suspect]
     Indication: HORMONE REPLACEMENT THERAPY
     Dosage: 0.9 MG
     Dates: start: 19880101, end: 20050101
  3. ESTRATEST [Suspect]
     Indication: HORMONE REPLACEMENT THERAPY
     Dates: start: 19990101
  4. ESTRADERM [Suspect]
     Indication: HORMONE REPLACEMENT THERAPY
     Dosage: 0.1 MG
     Dates: start: 20010101, end: 20020101
  5. ASPIRIN [Concomitant]
  6. FOSINOPRIL SODIUM [Concomitant]
  7. CALCIUM (CALCIUM) [Concomitant]
  8. VITAMIN D [Concomitant]
  9. ALLOPURINOL [Concomitant]

REACTIONS (1)
  - BREAST CANCER FEMALE [None]
